FAERS Safety Report 7399432-1 (Version None)
Quarter: 2011Q2

REPORT INFORMATION
  Report Type: 
  Country: None (occurrence: None)
  Receive Date: 20110407
  Receipt Date: 20110325
  Transmission Date: 20111010
  Serious: Yes (Other)
  Sender: FDA-Public Use
  Company Number: PHHY2009GB44740

PATIENT
  Sex: Male

DRUGS (5)
  1. SIMVASTATIN [Concomitant]
     Dosage: 20MG
     Route: 048
  2. CLOZARIL [Suspect]
     Dosage: 50 MG, BID
     Route: 048
     Dates: start: 20101029
  3. METFORMIN [Concomitant]
     Dosage: 1500MG
     Route: 048
  4. CLOZARIL [Suspect]
     Indication: SCHIZOPHRENIA
     Dosage: 100 MG, BID
     Route: 048
     Dates: start: 19950111, end: 20091014
  5. HYOSCINE [Concomitant]
     Indication: SALIVARY HYPERSECRETION
     Dosage: 300 UG, QHS

REACTIONS (8)
  - VENTRICULAR TACHYCARDIA [None]
  - MENTAL IMPAIRMENT [None]
  - STRESS [None]
  - HEART RATE INCREASED [None]
  - BLOOD PRESSURE INCREASED [None]
  - ELECTROCARDIOGRAM ABNORMAL [None]
  - PALPITATIONS [None]
  - DIABETES MELLITUS [None]
